FAERS Safety Report 21956375 (Version 4)
Quarter: 2024Q2

REPORT INFORMATION
  Report Type: Spontaneous
  Country: FR (occurrence: None)
  Receive Date: 20230206
  Receipt Date: 20240603
  Transmission Date: 20240716
  Serious: Yes (Death, Other)
  Sender: FDA-Public Use
  Company Number: 2023A030207

PATIENT
  Age: 80 Year
  Sex: Male

DRUGS (6)
  1. CALQUENCE [Suspect]
     Active Substance: ACALABRUTINIB
     Indication: Chronic lymphocytic leukaemia
     Route: 048
     Dates: start: 20220929, end: 20221026
  2. AUGMENTIN [Concomitant]
     Active Substance: AMOXICILLIN\CLAVULANATE POTASSIUM
  3. PREDNISONE [Concomitant]
     Active Substance: PREDNISONE
     Dosage: 80, 60, 40, 20 MG (DECREASING OVER 3 MONTHS), PRESCRIBED ON 30TH AUGUST 2022 TO TREAT A RELAPSE O...
  4. LEVOFLOXACIN [Concomitant]
     Active Substance: LEVOFLOXACIN
     Dosage: 500
     Dates: start: 20221011, end: 20221022
  5. FOLIC ACID [Concomitant]
     Active Substance: FOLIC ACID
  6. CEFTRIAXONE [Concomitant]
     Active Substance: CEFTRIAXONE\CEFTRIAXONE SODIUM
     Dates: start: 20221018

REACTIONS (10)
  - Aspergillus infection [Fatal]
  - Cerebral aspergillosis [Fatal]
  - Hypothyroidism [Fatal]
  - Herpes dermatitis [Fatal]
  - Monoplegia [Fatal]
  - Dysstasia [Fatal]
  - Diplegia [Fatal]
  - Acne [Fatal]
  - Renal failure [Unknown]
  - Inflammation [Unknown]
